FAERS Safety Report 21903111 (Version 2)
Quarter: 2023Q2

REPORT INFORMATION
  Report Type: Spontaneous
  Country: US (occurrence: US)
  Receive Date: 20230124
  Receipt Date: 20230422
  Transmission Date: 20230722
  Serious: Yes (Life-Threatening, Hospitalization, Other)
  Sender: FDA-Public Use
  Company Number: US-Accord-297030

PATIENT
  Age: 67 Year
  Sex: Female

DRUGS (5)
  1. DEXMEDETOMIDINE HYDROCHLORIDE [Suspect]
     Active Substance: DEXMEDETOMIDINE HYDROCHLORIDE
     Indication: Induction of anaesthesia
  2. SUCCINYLCHOLINE CHLORIDE [Suspect]
     Active Substance: SUCCINYLCHOLINE CHLORIDE
     Indication: Induction of anaesthesia
  3. PROPOFOL [Suspect]
     Active Substance: PROPOFOL
     Indication: Induction of anaesthesia
  4. ETOMIDATE [Suspect]
     Active Substance: ETOMIDATE
     Indication: Induction of anaesthesia
  5. FENTANYL [Concomitant]
     Active Substance: FENTANYL

REACTIONS (3)
  - Phaeochromocytoma crisis [Recovered/Resolved]
  - Acute kidney injury [Recovered/Resolved]
  - Stress cardiomyopathy [Recovered/Resolved]
